FAERS Safety Report 6316643-4 (Version None)
Quarter: 2009Q3

REPORT INFORMATION
  Report Type: 
  Country: None (occurrence: None)
  Receive Date: 20090820
  Receipt Date: 20090811
  Transmission Date: 20100115
  Serious: Yes (Death)
  Sender: FDA-Public Use
  Company Number: US-PFIZER INC-2009254457

PATIENT
  Sex: Male

DRUGS (1)
  1. EMCYT [Suspect]
     Dosage: 140 MG

REACTIONS (1)
  - DEATH [None]
